FAERS Safety Report 10945304 (Version 2)
Quarter: 2015Q2

REPORT INFORMATION
  Report Type: Spontaneous
  Country: US (occurrence: US)
  Receive Date: 20150323
  Receipt Date: 20150514
  Transmission Date: 20150821
  Serious: Yes (Death)
  Sender: FDA-Public Use
  Company Number: US-AMGEN-USASP2015025509

PATIENT
  Age: 84 Year
  Sex: Female
  Weight: 85.26 kg

DRUGS (14)
  1. PROLIA [Suspect]
     Active Substance: DENOSUMAB
     Indication: OSTEOPOROSIS POSTMENOPAUSAL
     Dosage: 60 MG, Q6MO
     Route: 058
     Dates: start: 20141014, end: 20141014
  2. LOSARTAN [Concomitant]
     Active Substance: LOSARTAN
  3. LORAFEN [Concomitant]
     Active Substance: LORAZEPAM
  4. COUMADIN [Concomitant]
     Active Substance: WARFARIN SODIUM
  5. LEVOTHYROXINE [Concomitant]
     Active Substance: LEVOTHYROXINE
  6. METOLAZONE. [Concomitant]
     Active Substance: METOLAZONE
  7. ULORIC [Concomitant]
     Active Substance: FEBUXOSTAT
  8. NAMENDA [Concomitant]
     Active Substance: MEMANTINE HYDROCHLORIDE
  9. METOPROLOL [Concomitant]
     Active Substance: METOPROLOL
  10. KLOR-CON [Concomitant]
     Active Substance: POTASSIUM CHLORIDE
     Dosage: 10 MG, UNK
  11. TORSEMIDE. [Concomitant]
     Active Substance: TORSEMIDE
  12. D3 UP [Concomitant]
  13. NTG [Concomitant]
     Active Substance: NITROGLYCERIN
  14. FEXOFENADINE [Concomitant]
     Active Substance: FEXOFENADINE\FEXOFENADINE HYDROCHLORIDE

REACTIONS (2)
  - Respiratory arrest [Fatal]
  - Cardiac failure congestive [Fatal]
